FAERS Safety Report 23060273 (Version 1)
Quarter: 2023Q4

REPORT INFORMATION
  Report Type: Spontaneous
  Country: US (occurrence: None)
  Receive Date: 20231012
  Receipt Date: 20231012
  Transmission Date: 20240109
  Serious: Yes (Hospitalization)
  Sender: FDA-Public Use
  Company Number: None

PATIENT
  Sex: Female

DRUGS (13)
  1. KESIMPTA [Suspect]
     Active Substance: OFATUMUMAB
     Indication: Multiple sclerosis
     Route: 058
     Dates: start: 20220823
  2. CITALOPRAM [Concomitant]
     Active Substance: CITALOPRAM HYDROBROMIDE
  3. GABAPENTIN [Concomitant]
     Active Substance: GABAPENTIN
  4. METOPROL SUC TAB [Concomitant]
  5. RANITIDINE [Concomitant]
     Active Substance: RANITIDINE
  6. SEROQUEL [Concomitant]
     Active Substance: QUETIAPINE FUMARATE
  7. GABAPENTIN [Concomitant]
     Active Substance: GABAPENTIN
  8. DIVALPROEX SODIUM [Concomitant]
     Active Substance: DIVALPROEX SODIUM
  9. FERROUS SULFATE [Concomitant]
     Active Substance: FERROUS SULFATE
  10. MIDODRINE [Concomitant]
     Active Substance: MIDODRINE
  11. ONDANSETRON [Concomitant]
     Active Substance: ONDANSETRON
  12. CLOTRIM/BETA DIPROP [Concomitant]
  13. CALCITRIOL [Concomitant]
     Active Substance: CALCITRIOL

REACTIONS (2)
  - Pain [None]
  - Pneumonia [None]
